FAERS Safety Report 15715329 (Version 2)
Quarter: 2019Q1

REPORT INFORMATION
  Report Type: Spontaneous
  Country: US (occurrence: US)
  Receive Date: 20181212
  Receipt Date: 20190114
  Transmission Date: 20190417
  Serious: Yes (Hospitalization)
  Sender: FDA-Public Use
  Company Number: US-TEVA-2018-US-926515

PATIENT
  Sex: Male

DRUGS (1)
  1. FLUOROURACIL. [Suspect]
     Active Substance: FLUOROURACIL
     Indication: NEOPLASM MALIGNANT
     Dosage: RECEIVED THE ENTIRE FOUR DAYS COURSE OF 4000 MG OF FLUOROURACIL BY IV INFUSION IN LESS THAN
     Route: 041

REACTIONS (4)
  - Accidental overdose [Recovered/Resolved]
  - Incorrect drug administration rate [Recovered/Resolved]
  - Product label confusion [Recovered/Resolved]
  - Circumstance or information capable of leading to medication error [Unknown]
